FAERS Safety Report 20725039 (Version 1)
Quarter: 2022Q2

REPORT INFORMATION
  Report Type: Spontaneous
  Country: CH (occurrence: CH)
  Receive Date: 20220419
  Receipt Date: 20220419
  Transmission Date: 20220721
  Serious: Yes (Other)
  Sender: FDA-Public Use
  Company Number: CH-SM-2021-26350

PATIENT
  Age: 49 Year
  Sex: Female
  Weight: 59 kg

DRUGS (5)
  1. IBUPROFEN [Suspect]
     Active Substance: IBUPROFEN
     Dosage: IRFEN FORM STRENGTH- 600 MG, UNIT DOSE 3 DF, 3 TABLETS (NO DOSING INTERVAL INDICATED)
     Route: 048
  2. MODERNA COVID-19 VACCINE [Suspect]
     Active Substance: ELASOMERAN
     Dosage: FIRST DOSE OF VACCINE, 1 DF, FREQUENCY TIME- 1 DAYS
     Route: 030
     Dates: start: 20210803, end: 20210803
  3. MODERNA COVID-19 VACCINE [Suspect]
     Active Substance: ELASOMERAN
     Dosage: SECOND DOSE OF VACCINE, 1 DF, FREQUENCY TIME- 1 DAYS
     Route: 030
     Dates: start: 20210831, end: 20210831
  4. NOVALGIN (METAMIZOLE SODIUM) [Suspect]
     Active Substance: METAMIZOLE SODIUM
     Dosage: NOVALGIN, FORM STRENGTH: 500MG, UNIT DOSE: 2 DF, 2 TABLETS (NO DOSING INTERVAL INDICATED),
     Route: 048
  5. FLUTICASONE PROPIONATE\FORMOTEROL FUMARATE [Concomitant]
     Active Substance: FLUTICASONE PROPIONATE\FORMOTEROL FUMARATE
     Dosage: FLUTIFORM 250, 1 DF, INHALATION (NO DOSING INTERVAL INDICATED)
     Route: 055

REACTIONS (10)
  - Angioedema [Recovering/Resolving]
  - Nausea [Recovering/Resolving]
  - Diarrhoea [Recovering/Resolving]
  - Rash [Recovering/Resolving]
  - Visual impairment [Recovering/Resolving]
  - Palpitations [Recovering/Resolving]
  - Somnolence [Recovering/Resolving]
  - Dizziness [Recovering/Resolving]
  - Haemorrhage [Recovering/Resolving]
  - Haematoma [Recovering/Resolving]

NARRATIVE: CASE EVENT DATE: 20210803
